FAERS Safety Report 7916073-5 (Version None)
Quarter: 2011Q4

REPORT INFORMATION
  Report Type: 
  Country: None (occurrence: None)
  Receive Date: 20111115
  Receipt Date: 20090922
  Transmission Date: 20120403
  Serious: Yes (Other)
  Sender: FDA-Public Use
  Company Number: PHHY2010TW44586

PATIENT
  Sex: Female

DRUGS (3)
  1. GLEEVEC [Suspect]
     Dosage: 400 MG ONE TIME PER DAY
     Route: 048
  2. GLEEVEC [Suspect]
     Indication: CHRONIC MYELOID LEUKAEMIA
     Dosage: 400 MG, UNK
     Route: 048
  3. GLEEVEC [Suspect]
     Dosage: 2 DF, BID
     Route: 048

REACTIONS (4)
  - SPINAL FRACTURE [None]
  - BONE PAIN [None]
  - DECREASED APPETITE [None]
  - DEPRESSION [None]
